FAERS Safety Report 7726220-6 (Version None)
Quarter: 2011Q3

REPORT INFORMATION
  Report Type: 
  Country: None (occurrence: None)
  Receive Date: 20110902
  Receipt Date: 20110411
  Transmission Date: 20111222
  Serious: Yes (Death)
  Sender: FDA-Public Use
  Company Number: JP-BAYER-2011-031231

PATIENT

DRUGS (1)
  1. NEXAVAR [Suspect]
     Indication: HEPATIC NEOPLASM MALIGNANT
     Dosage: 200 MG, QD
     Route: 048
     Dates: start: 20100811, end: 20101125

REACTIONS (7)
  - DECREASED APPETITE [None]
  - DIARRHOEA [None]
  - EPISTAXIS [None]
  - HYPOGEUSIA [None]
  - PYREXIA [None]
  - FATIGUE [None]
  - HEPATIC NEOPLASM MALIGNANT [None]
